FAERS Safety Report 5807150-3 (Version None)
Quarter: 2008Q3

REPORT INFORMATION
  Report Type: 
  Country: None (occurrence: None)
  Receive Date: 20080711
  Receipt Date: 20080703
  Transmission Date: 20090109
  Serious: Yes (Death, Other)
  Sender: FDA-Public Use
  Company Number: US-AVENTIS-200814143US

PATIENT
  Age: 63 Year
  Sex: Female
  Weight: 90.9 kg

DRUGS (2)
  1. LOVENOX [Suspect]
     Dosage: DOSE: UNK
     Route: 051
     Dates: start: 20080201
  2. COUMADIN [Concomitant]
     Dosage: DOSE: UNK

REACTIONS (4)
  - DEATH [None]
  - DRUG INEFFECTIVE [None]
  - INTRA-ABDOMINAL HAEMORRHAGE [None]
  - PULMONARY EMBOLISM [None]
